FAERS Safety Report 6433058-9 (Version None)
Quarter: 2009Q4

REPORT INFORMATION
  Report Type: 
  Country: None (occurrence: None)
  Receive Date: 20091109
  Receipt Date: 20091030
  Transmission Date: 20100525
  Serious: No
  Sender: FDA-Public Use
  Company Number: US-B.I. PHARMACEUTICALS,INC./RIDGEFIELD-2009-BP-12762BP

PATIENT
  Sex: Female

DRUGS (5)
  1. SPIRIVA [Suspect]
     Indication: PULMONARY HYPERTENSION
     Dosage: 18 MCG
     Route: 055
     Dates: start: 20090801, end: 20090801
  2. DUONEB [Concomitant]
     Indication: PULMONARY HYPERTENSION
  3. PULMICORT [Concomitant]
     Indication: PULMONARY HYPERTENSION
  4. ALBUTEROL [Concomitant]
     Indication: PULMONARY HYPERTENSION
  5. ADVAIR DISKUS 100/50 [Concomitant]
     Indication: PULMONARY HYPERTENSION

REACTIONS (1)
  - OROPHARYNGEAL PAIN [None]
